FAERS Safety Report 7960828-8 (Version None)
Quarter: 2011Q4

REPORT INFORMATION
  Report Type: 
  Country: None (occurrence: None)
  Receive Date: 20111207
  Receipt Date: 20111128
  Transmission Date: 20120403
  Serious: No
  Sender: FDA-Public Use
  Company Number: US-BIOGENIDEC-2011BI045171

PATIENT
  Age: 31 Year
  Sex: Female

DRUGS (1)
  1. AVONEX [Suspect]
     Indication: MULTIPLE SCLEROSIS
     Route: 030
     Dates: start: 20111016

REACTIONS (5)
  - HAEMORRHAGE [None]
  - INJECTION SITE HAEMORRHAGE [None]
  - ERYTHEMA [None]
  - INJECTION SITE HAEMATOMA [None]
  - ARTHRALGIA [None]
